FAERS Safety Report 14087379 (Version 2)
Quarter: 2017Q4

REPORT INFORMATION
  Report Type: Spontaneous
  Country: JP (occurrence: JP)
  Receive Date: 20171013
  Receipt Date: 20171213
  Transmission Date: 20180321
  Serious: Yes (Hospitalization, Other)
  Sender: FDA-Public Use
  Company Number: JP-BAXTER-2017BAX032204

PATIENT
  Age: 63 Year
  Sex: Female

DRUGS (26)
  1. GLUCOSE [Suspect]
     Active Substance: DEXTROSE
     Dosage: LEED THERAPY, REDUCED TO HALF DOSE
     Route: 065
     Dates: start: 20170821, end: 20170821
  2. SEISHOKU [Suspect]
     Active Substance: SODIUM CHLORIDE
     Indication: STEM CELL TRANSPLANT
     Dosage: LEED THERAPY
     Route: 041
     Dates: start: 20170719, end: 20170719
  3. ALOXI [Suspect]
     Active Substance: PALONOSETRON HYDROCHLORIDE
     Indication: BURKITT^S LYMPHOMA
     Dosage: LEED THERAPY
     Route: 041
     Dates: start: 20170719, end: 20170719
  4. ALOXI [Suspect]
     Active Substance: PALONOSETRON HYDROCHLORIDE
     Dosage: LEED THERAPY
     Route: 065
     Dates: start: 20170821, end: 20170821
  5. UROMITEXAN 400 MG [Suspect]
     Active Substance: MESNA
     Indication: BURKITT^S LYMPHOMA
     Dosage: LEED THERAPY
     Route: 041
     Dates: start: 20170719, end: 20170719
  6. CELLTOP 100 MG/5 ML, SOLUTION INJECTABLE POUR PERFUSION [Suspect]
     Active Substance: ETOPOSIDE
     Dosage: LEED THERAPY
     Route: 065
     Dates: start: 20170821, end: 20170821
  7. MEYLON [Suspect]
     Active Substance: SODIUM BICARBONATE
     Dosage: LEED THERAPY
     Route: 065
     Dates: start: 20170821, end: 20170821
  8. NAUZELIN [Concomitant]
     Active Substance: DOMPERIDONE
     Indication: PRODUCT USED FOR UNKNOWN INDICATION
     Route: 065
  9. SODIUM RABEPRAZOLE [Concomitant]
     Active Substance: RABEPRAZOLE SODIUM
     Indication: PRODUCT USED FOR UNKNOWN INDICATION
     Route: 065
  10. SEISHOKU [Suspect]
     Active Substance: SODIUM CHLORIDE
     Dosage: LEED THERAPY
     Route: 065
     Dates: start: 20170821, end: 20170821
  11. ENDOXAN 1G [Suspect]
     Active Substance: CYCLOPHOSPHAMIDE
     Indication: STEM CELL TRANSPLANT
     Dosage: DECREASED DOSE
     Route: 041
     Dates: start: 20170821, end: 20170821
  12. GLUCOSE [Suspect]
     Active Substance: DEXTROSE
     Indication: STEM CELL TRANSPLANT
     Dosage: LEED THERAPY
     Route: 041
     Dates: start: 20170719, end: 20170719
  13. DAIPHEN [Concomitant]
     Active Substance: SULFAMETHOXAZOLE\TRIMETHOPRIM
     Indication: PRODUCT USED FOR UNKNOWN INDICATION
     Route: 065
  14. VALTREX [Concomitant]
     Active Substance: VALACYCLOVIR HYDROCHLORIDE
     Indication: PRODUCT USED FOR UNKNOWN INDICATION
     Route: 065
  15. SALINE [Suspect]
     Active Substance: SODIUM CHLORIDE
     Indication: INAPPROPRIATE ANTIDIURETIC HORMONE SECRETION
     Route: 065
     Dates: start: 20170720
  16. CARBOCISTEINE [Concomitant]
     Active Substance: CARBOCYSTEINE
     Indication: PRODUCT USED FOR UNKNOWN INDICATION
     Route: 065
  17. ENDOXAN 1G [Suspect]
     Active Substance: CYCLOPHOSPHAMIDE
     Indication: BURKITT^S LYMPHOMA
     Dosage: LEED THERAPY ON DAY 1
     Route: 041
     Dates: start: 20170719, end: 20170719
  18. DEXART [Suspect]
     Active Substance: DEXAMETHASONE SODIUM PHOSPHATE
     Indication: BURKITT^S LYMPHOMA
     Dosage: LEED THERAPY
     Route: 041
     Dates: start: 20170719, end: 20170719
  19. POTASSIUM CHLORIDE. [Suspect]
     Active Substance: POTASSIUM CHLORIDE
     Indication: HYPOKALAEMIA
     Route: 065
     Dates: start: 20170720
  20. CRAVIT [Concomitant]
     Active Substance: LEVOFLOXACIN
     Indication: PRODUCT USED FOR UNKNOWN INDICATION
     Route: 065
  21. MEYLON [Suspect]
     Active Substance: SODIUM BICARBONATE
     Indication: STEM CELL TRANSPLANT
     Dosage: LEED THERAPY
     Route: 041
     Dates: start: 20170719, end: 20170719
  22. DEXART [Suspect]
     Active Substance: DEXAMETHASONE SODIUM PHOSPHATE
     Dosage: LEED THERAPY
     Route: 065
     Dates: start: 20170821, end: 20170821
  23. UROMITEXAN 400 MG [Suspect]
     Active Substance: MESNA
     Dosage: LEED THERAPY
     Route: 065
     Dates: start: 20170821, end: 20170821
  24. CELLTOP 100 MG/5 ML, SOLUTION INJECTABLE POUR PERFUSION [Suspect]
     Active Substance: ETOPOSIDE
     Indication: BURKITT^S LYMPHOMA
     Dosage: LEED THERAPY
     Route: 041
     Dates: start: 20170719, end: 20170719
  25. EMEND [Suspect]
     Active Substance: APREPITANT
     Indication: BURKITT^S LYMPHOMA
     Route: 065
  26. DIFLUCAN [Concomitant]
     Active Substance: FLUCONAZOLE
     Indication: PRODUCT USED FOR UNKNOWN INDICATION
     Route: 065

REACTIONS (6)
  - Depressed level of consciousness [Recovered/Resolved]
  - Seizure [Unknown]
  - Hyponatraemia [Recovered/Resolved]
  - General physical health deterioration [Recovered/Resolved]
  - Urine output increased [Recovered/Resolved]
  - Hypokalaemia [Recovered/Resolved]

NARRATIVE: CASE EVENT DATE: 201707
